FAERS Safety Report 9024040 (Version 2)
Quarter: 2013Q1

REPORT INFORMATION
  Report Type: Spontaneous
  Country: IT (occurrence: IT)
  Receive Date: 20130122
  Receipt Date: 20130207
  Transmission Date: 20140127
  Serious: Yes (Hospitalization, Other)
  Sender: FDA-Public Use
  Company Number: IT-BRISTOL-MYERS SQUIBB COMPANY-17289224

PATIENT
  Age: 78 Year
  Sex: Female

DRUGS (13)
  1. COUMADIN TABS 5 MG [Suspect]
     Indication: ATRIAL FIBRILLATION
     Dosage: 1DF=1 UNIT
     Route: 048
     Dates: start: 20121201, end: 20130111
  2. CLAVULIN [Interacting]
     Indication: BRONCHOPNEUMONIA
     Dosage: FORMUALTION-CLAVULIN 875MG/125MG TABS
     Route: 048
     Dates: start: 20130106, end: 20130111
  3. TORASEMIDE [Concomitant]
  4. PANTOPRAZOLE [Concomitant]
  5. BISOPROLOL HEMIFUMARATE [Concomitant]
     Route: 048
  6. ATORVASTATIN [Concomitant]
  7. ALDACTONE [Concomitant]
     Dosage: FORMULATION-ALDACTONE 25 MG TABS
  8. HUMALOG [Concomitant]
     Dosage: FORMULATION-HUMALOG 100 U/ML SOL FOR INJ?1DF=16UNITS
     Route: 058
  9. PLAVIX [Concomitant]
  10. CARDIOASPIRIN [Concomitant]
     Dosage: FORMULATION-CARDIOASPIRIN 100 MG TABS
  11. LANTUS [Concomitant]
     Dosage: FORMULATION-LANTUS 100IU/ML SOLN FOR INJ?1DF=6 UNITS
     Route: 058
  12. NITRODERM TTS [Concomitant]
     Dosage: NITRODERM TTS PATCHES
  13. RANEXA [Concomitant]
     Dosage: FORMULATION-RANEXA 375 MG TABS

REACTIONS (2)
  - Haematoma [Recovering/Resolving]
  - Drug interaction [Unknown]
